FAERS Safety Report 4343942-8 (Version None)
Quarter: 2004Q2

REPORT INFORMATION
  Report Type: 
  Country: None (occurrence: None)
  Receive Date: 20040422
  Receipt Date: 20031114
  Transmission Date: 20050107
  Serious: Yes (Hospitalization)
  Sender: FDA-Public Use
  Company Number: GB-ROCHE-351801

PATIENT
  Age: 47 Year
  Sex: Male

DRUGS (17)
  1. DACLIZUMAB [Suspect]
     Route: 042
     Dates: start: 20031104, end: 20031104
  2. DACLIZUMAB [Suspect]
     Route: 042
     Dates: start: 20031117, end: 20031117
  3. MYCOPHENOLATE MOFETIL [Suspect]
     Route: 048
     Dates: start: 20031104
  4. SIROLIMUS [Suspect]
     Route: 048
     Dates: start: 20031104
  5. PREDNISOLONE [Suspect]
     Route: 048
     Dates: start: 20031104
  6. CO-TRIMOXAZOLE [Concomitant]
     Route: 048
  7. ATORVASTATIN [Concomitant]
     Route: 048
  8. NIFEDIPINE [Concomitant]
     Route: 048
  9. ATENOLOL [Concomitant]
     Route: 048
  10. LANSOPRAZOLE [Concomitant]
     Route: 048
  11. ASPIRIN [Concomitant]
     Route: 048
  12. SENNA [Concomitant]
     Route: 048
  13. FOLIC ACID [Concomitant]
     Route: 048
  14. ARANESP [Concomitant]
     Route: 058
  15. CO PROXAMOL [Concomitant]
  16. LACTULOSE [Concomitant]
  17. FLUCLOXACILLIN [Concomitant]
     Route: 048

REACTIONS (4)
  - BLOOD CREATININE INCREASED [None]
  - INFECTION [None]
  - KIDNEY TRANSPLANT REJECTION [None]
  - WOUND SECRETION [None]
